FAERS Safety Report 17833704 (Version 1)
Quarter: 2020Q2

REPORT INFORMATION
  Report Type: Spontaneous
  Country: US (occurrence: US)
  Receive Date: 20200527
  Receipt Date: 20200527
  Transmission Date: 20200714
  Serious: Yes (Death)
  Sender: FDA-Public Use
  Company Number: None

PATIENT
  Sex: Female

DRUGS (11)
  1. COMPAZINE [Concomitant]
     Active Substance: PROCHLORPERAZINE MALEATE
  2. MULTIVITAMIN ADULT [Concomitant]
  3. SELENIUM [Concomitant]
     Active Substance: SELENIUM
  4. CALCIUM [Concomitant]
     Active Substance: CALCIUM
  5. MELATONIN [Concomitant]
     Active Substance: MELATONIN
  6. VITAMIN D3 [Concomitant]
     Active Substance: CHOLECALCIFEROL
  7. CYCLOPHOSPHAMIDE 50MG CAP [Suspect]
     Active Substance: CYCLOPHOSPHAMIDE
     Dosage: ?          OTHER FREQUENCY:21 D ON - 7 D OFF;?
     Route: 048
     Dates: start: 20200319
  8. GABAPENTIN. [Concomitant]
     Active Substance: GABAPENTIN
  9. DIPHENHYDRAM [Concomitant]
  10. ONDANSETRON [Concomitant]
     Active Substance: ONDANSETRON
  11. TURMERIC [Concomitant]
     Active Substance: HERBALS\TURMERIC

REACTIONS (1)
  - Death [None]
